FAERS Safety Report 7892486-5 (Version None)
Quarter: 2011Q4

REPORT INFORMATION
  Report Type: 
  Country: None (occurrence: None)
  Receive Date: 20111104
  Receipt Date: 20111101
  Transmission Date: 20120403
  Serious: Yes (Hospitalization, Other)
  Sender: FDA-Public Use
  Company Number: US-JNJFOC-20110803029

PATIENT
  Sex: Female
  Weight: 50.8 kg

DRUGS (2)
  1. NORGESTIMATE AND ETHINYL ESTRADIOL [Suspect]
     Indication: CONTRACEPTION
     Dosage: 1-1.5 YEARS, T DAILY
     Route: 048
     Dates: end: 20110721
  2. NORGESTIMATE AND ETHINYL ESTRADIOL [Suspect]
     Indication: MENSTRUATION IRREGULAR
     Dosage: 1-1.5 YEARS, T DAILY
     Route: 048
     Dates: end: 20110721

REACTIONS (5)
  - COAGULOPATHY [None]
  - BLOOD URINE PRESENT [None]
  - OFF LABEL USE [None]
  - CONTRAINDICATION TO MEDICAL TREATMENT [None]
  - CEREBROVASCULAR ACCIDENT [None]
